FAERS Safety Report 17180820 (Version 1)
Quarter: 2019Q4

REPORT INFORMATION
  Report Type: Spontaneous
  Country: CA (occurrence: CA)
  Receive Date: 20191219
  Receipt Date: 20191219
  Transmission Date: 20200122
  Serious: Yes (Other)
  Sender: FDA-Public Use
  Company Number: CA-HONG KONG KING-FRIEND INDUSTRIAL COMPANY-2019NKF00035

PATIENT
  Age: 78 Year
  Sex: Male

DRUGS (4)
  1. PLATELETS [Concomitant]
     Active Substance: HUMAN PLATELET, ALLOGENIC
     Dosage: 5 U
     Route: 065
  2. HEPARIN SODIUM. [Suspect]
     Active Substance: HEPARIN SODIUM
     Indication: THROMBOSIS PROPHYLAXIS
     Dosage: (INTRAOPERATIVE ^HEPARINIZATION^)
     Route: 065
  3. RED BLOOD CELLS [Concomitant]
     Active Substance: HUMAN RED BLOOD CELL
     Dosage: 10 U
     Route: 065
  4. HEPARIN SODIUM. [Suspect]
     Active Substance: HEPARIN SODIUM
     Indication: DEEP VEIN THROMBOSIS
     Dosage: (UNFRACTIONATED HEPARIN)
     Route: 065

REACTIONS (4)
  - Disseminated intravascular coagulation [Unknown]
  - Heparin-induced thrombocytopenia [Unknown]
  - Deep vein thrombosis [Unknown]
  - Dry gangrene [Unknown]
